FAERS Safety Report 7419379-1 (Version None)
Quarter: 2011Q2

REPORT INFORMATION
  Report Type: 
  Country: None (occurrence: None)
  Receive Date: 20110415
  Receipt Date: 20110411
  Transmission Date: 20111010
  Serious: Yes (Hospitalization, Other)
  Sender: FDA-Public Use
  Company Number: US-RB-020617-11

PATIENT
  Age: 66 Year
  Sex: Male

DRUGS (1)
  1. SUBOXONE [Suspect]
     Indication: DRUG DEPENDENCE
     Dosage: PIECES OF A 8 MG TABLET
     Route: 065
     Dates: end: 20110401

REACTIONS (20)
  - DECREASED APPETITE [None]
  - BACK DISORDER [None]
  - SUICIDAL IDEATION [None]
  - IMPAIRED GASTRIC EMPTYING [None]
  - MICTURITION DISORDER [None]
  - PROSTATOMEGALY [None]
  - DRUG WITHDRAWAL SYNDROME [None]
  - INSOMNIA [None]
  - ANXIETY [None]
  - DIARRHOEA [None]
  - HEADACHE [None]
  - POLYP [None]
  - FEELING ABNORMAL [None]
  - CARDIAC DISORDER [None]
  - TESTICULAR DISORDER [None]
  - EUPHORIC MOOD [None]
  - INTENTIONAL DRUG MISUSE [None]
  - CONSTIPATION [None]
  - ASTHENIA [None]
  - DYSURIA [None]
